FAERS Safety Report 14959239 (Version 3)
Quarter: 2018Q3

REPORT INFORMATION
  Report Type: Spontaneous
  Country: FR (occurrence: FR)
  Receive Date: 20180531
  Receipt Date: 20180731
  Transmission Date: 20181010
  Serious: Yes (Hospitalization)
  Sender: FDA-Public Use
  Company Number: FR-TEVA-2018-FR-899215

PATIENT
  Age: 47 Year
  Sex: Female
  Weight: 37.1 kg

DRUGS (8)
  1. PANTOPRAZOLE MYLAN 20 MG, COMPRIM? GASTRO?R?SISTANT [Suspect]
     Active Substance: PANTOPRAZOLE SODIUM
     Indication: PROPHYLAXIS AGAINST GASTROINTESTINAL ULCER
     Dosage: 20 MILLIGRAM DAILY;
     Route: 048
     Dates: start: 20170126, end: 20170313
  2. IOMERON [Suspect]
     Active Substance: IOMEPROL
     Indication: PRODUCT USED FOR UNKNOWN INDICATION
     Route: 065
  3. SPECIAFOLDINE 0,4 MG, COMPRIM? [Suspect]
     Active Substance: FOLIC ACID
     Indication: PRODUCT USED FOR UNKNOWN INDICATION
     Dosage: .4 MILLIGRAM DAILY;
     Route: 048
     Dates: start: 20170204, end: 20170320
  4. RACECADOTRIL BGR 100 MG, G?LULE [Suspect]
     Active Substance: RACECADOTRIL
     Indication: DIARRHOEA
     Dosage: 300 MILLIGRAM DAILY;
     Route: 048
     Dates: start: 20170305, end: 20170320
  5. ASPIRINE PROTECT [Suspect]
     Active Substance: ASPIRIN
     Indication: PROPHYLAXIS
     Dosage: 100 MILLIGRAM DAILY;
     Route: 048
     Dates: start: 20170215, end: 20170310
  6. PROPRANOLOL [Suspect]
     Active Substance: PROPRANOLOL HYDROCHLORIDE
     Indication: PRODUCT USED FOR UNKNOWN INDICATION
     Dosage: 40 MILLIGRAM DAILY;
     Route: 048
     Dates: start: 20170306, end: 20170401
  7. MECIR L.P. 0,4 MG, COMPRIM? PELLICUL? ? LIB?RATION PROLONG?E [Suspect]
     Active Substance: TAMSULOSIN HYDROCHLORIDE
     Indication: BLADDER DILATATION
     Dosage: .4 MILLIGRAM DAILY;
     Route: 048
     Dates: start: 20170305, end: 20170311
  8. VANCOMYCINE SANDOZ 500 MG, POUDRE POUR SOLUTION POUR PERFUSION [Suspect]
     Active Substance: VANCOMYCIN HYDROCHLORIDE
     Indication: INFLAMMATORY MARKER INCREASED
     Dosage: 2 GRAM DAILY;
     Route: 042
     Dates: start: 20170218, end: 20170310

REACTIONS (3)
  - Rash maculo-papular [Recovered/Resolved]
  - Rash generalised [Recovered/Resolved]
  - Off label use [Unknown]

NARRATIVE: CASE EVENT DATE: 20170310
